FAERS Safety Report 5338350-7 (Version None)
Quarter: 2007Q2

REPORT INFORMATION
  Report Type: 
  Country: None (occurrence: None)
  Receive Date: 20070530
  Receipt Date: 20070521
  Transmission Date: 20071010
  Serious: Yes (Other)
  Sender: FDA-Public Use
  Company Number: JP-ROCHE-490849

PATIENT
  Age: 16 Year
  Sex: Male
  Weight: 58 kg

DRUGS (5)
  1. TAMIFLU [Suspect]
     Route: 048
     Dates: start: 20061222, end: 20061222
  2. TAMIFLU [Suspect]
     Route: 048
     Dates: start: 20061223, end: 20061226
  3. TAMIFLU [Suspect]
     Route: 048
     Dates: start: 20061227
  4. COCARL [Concomitant]
     Route: 048
     Dates: start: 20061222, end: 20061224
  5. THEO-DUR [Concomitant]
     Route: 048
     Dates: start: 20061222, end: 20061229

REACTIONS (1)
  - ABNORMAL BEHAVIOUR [None]
